FAERS Safety Report 12338824 (Version 1)
Quarter: 2016Q2

REPORT INFORMATION
  Report Type: Spontaneous
  Country: FR (occurrence: FR)
  Receive Date: 20160505
  Receipt Date: 20160505
  Transmission Date: 20160815
  Serious: Yes (Life-Threatening, Hospitalization, Other)
  Sender: FDA-Public Use
  Company Number: FR-SA-2016SA086001

PATIENT
  Age: 72 Year
  Sex: Male
  Weight: 74 kg

DRUGS (10)
  1. AUGMENTIN [Concomitant]
     Active Substance: AMOXICILLIN\CLAVULANATE POTASSIUM
     Dates: start: 20150909
  2. CORDARONE [Concomitant]
     Active Substance: AMIODARONE HYDROCHLORIDE
     Dates: start: 201509
  3. TAHOR [Concomitant]
     Active Substance: ATORVASTATIN CALCIUM
  4. PANTOPRAZOLE [Concomitant]
     Active Substance: PANTOPRAZOLE SODIUM
  5. ACTRAPID [Concomitant]
     Active Substance: INSULIN HUMAN
  6. BISOPROLOL [Concomitant]
     Active Substance: BISOPROLOL
  7. PARACETAMOL [Concomitant]
     Active Substance: ACETAMINOPHEN
  8. PRIMPERAN [Concomitant]
     Active Substance: METOCLOPRAMIDE HYDROCHLORIDE
  9. ASPEGIC [Suspect]
     Active Substance: ASPIRIN DL-LYSINE
     Dosage: 1 SACHET
     Route: 048
     Dates: start: 20150912, end: 20150919
  10. LOVENOX [Suspect]
     Active Substance: ENOXAPARIN SODIUM
     Indication: ANTICOAGULANT THERAPY
     Route: 058
     Dates: start: 20150912, end: 20150919

REACTIONS (3)
  - Hypotension [Recovered/Resolved]
  - Haematemesis [Recovered/Resolved]
  - Gastric haemorrhage [Recovered/Resolved]

NARRATIVE: CASE EVENT DATE: 20150919
